FAERS Safety Report 24691540 (Version 1)
Quarter: 2024Q4

REPORT INFORMATION
  Report Type: Report from Study
  Country: KR (occurrence: KR)
  Receive Date: 20241203
  Receipt Date: 20241203
  Transmission Date: 20250114
  Serious: Yes (Hospitalization)
  Sender: PFIZER
  Company Number: KR-PFIZER INC-PV202400154407

PATIENT
  Age: 79 Year
  Sex: Male
  Weight: 54.5 kg

DRUGS (17)
  1. VINCRISTINE SULFATE [Suspect]
     Active Substance: VINCRISTINE SULFATE
     Indication: Diffuse large B-cell lymphoma
     Dosage: UNK, REGIMEN #1
     Route: 042
     Dates: start: 20211117, end: 20211206
  2. VINCRISTINE SULFATE [Suspect]
     Active Substance: VINCRISTINE SULFATE
     Dosage: UNK, REGIMEN #2
     Route: 042
     Dates: start: 20211216
  3. INVESTIGATIONAL PRODUCT [Suspect]
     Active Substance: INVESTIGATIONAL PRODUCT
     Indication: Diffuse large B-cell lymphoma
     Dosage: UNK, 1X/DAY, TAFASITAMAB/PLACEBO
     Route: 042
     Dates: start: 20211116, end: 20211128
  4. INVESTIGATIONAL PRODUCT [Suspect]
     Active Substance: INVESTIGATIONAL PRODUCT
     Dosage: UNK, REGIMEN #2, TAFASITAMAB/PLACEBO
     Dates: start: 20211202
  5. INVESTIGATIONAL PRODUCT [Suspect]
     Active Substance: INVESTIGATIONAL PRODUCT
     Dosage: UNK, 1X/DAY, LENALIDOMIDE/PLACEBO
     Route: 048
     Dates: start: 20211116, end: 20211206
  6. INVESTIGATIONAL PRODUCT [Suspect]
     Active Substance: INVESTIGATIONAL PRODUCT
     Dosage: UNK, LENALIDOMIDE/PLACEBO
     Dates: start: 20211216
  7. RITUXIMAB [Suspect]
     Active Substance: RITUXIMAB
     Indication: Diffuse large B-cell lymphoma
     Dosage: UNK, REGIMEN #1
     Dates: start: 20211117, end: 20211206
  8. RITUXIMAB [Suspect]
     Active Substance: RITUXIMAB
     Dosage: UNK, REGIMEN #2
     Dates: start: 20211216
  9. CYCLOPHOSPHAMIDE [Suspect]
     Active Substance: CYCLOPHOSPHAMIDE
     Indication: Diffuse large B-cell lymphoma
     Dosage: UNK, REGIMEN #1
     Route: 042
     Dates: start: 20211117, end: 20211206
  10. CYCLOPHOSPHAMIDE [Suspect]
     Active Substance: CYCLOPHOSPHAMIDE
     Dosage: UNK, REGIMEN #2
     Route: 042
     Dates: start: 20211216
  11. DOXORUBICIN [Suspect]
     Active Substance: DOXORUBICIN
     Indication: Diffuse large B-cell lymphoma
     Dosage: UNK, REGIMEN #1
     Route: 042
     Dates: start: 20211119, end: 20211206
  12. DOXORUBICIN [Suspect]
     Active Substance: DOXORUBICIN
     Dosage: UNK, REGIMEN #2
     Route: 042
     Dates: start: 20211216
  13. PREDNISONE [Suspect]
     Active Substance: PREDNISONE
     Indication: Diffuse large B-cell lymphoma
     Dosage: UNK, MILLIGRAM; REGIMEN #1
     Dates: start: 20211117, end: 20211206
  14. PREDNISONE [Suspect]
     Active Substance: PREDNISONE
     Dosage: UNK, MILLIGRAM; REGIMEN #2
     Dates: start: 20211216
  15. DURICEF [Concomitant]
     Active Substance: CEFADROXIL
     Indication: Prophylaxis
     Dosage: 1000 MG
     Route: 048
     Dates: start: 20211116, end: 20211118
  16. MEDILAC DS [Concomitant]
     Indication: Prophylaxis
     Dosage: 3 CAPSULES
     Route: 048
     Dates: start: 20211116, end: 20211118
  17. NEULAPEG [Concomitant]
     Indication: Prophylaxis
     Dosage: 6 MG
     Route: 058
     Dates: start: 20211118, end: 20211118

REACTIONS (2)
  - Febrile neutropenia [Recovered/Resolved]
  - Sepsis [Recovered/Resolved]

NARRATIVE: CASE EVENT DATE: 20211125
